FAERS Safety Report 4742185-3 (Version None)
Quarter: 2005Q3

REPORT INFORMATION
  Report Type: 
  Country: None (occurrence: None)
  Receive Date: 20050811
  Receipt Date: 20050310
  Transmission Date: 20060218
  Serious: No
  Sender: FDA-Public Use
  Company Number: US-GLAXOSMITHKLINE-A0549263A

PATIENT
  Age: 63 Year
  Sex: Male

DRUGS (7)
  1. PAXIL CR [Suspect]
     Indication: DEPRESSION
     Dosage: 25MG PER DAY
     Route: 048
  2. PLAVIX [Concomitant]
  3. ISOSORBIDE [Concomitant]
  4. CARDURA [Concomitant]
  5. LISINOPRIL [Concomitant]
  6. INSULIN [Concomitant]
  7. FOLIC ACID [Concomitant]

REACTIONS (3)
  - BEDRIDDEN [None]
  - CONFUSIONAL STATE [None]
  - DEPERSONALISATION [None]
